FAERS Safety Report 5075694-0 (Version None)
Quarter: 2006Q3

REPORT INFORMATION
  Report Type: 
  Country: None (occurrence: None)
  Receive Date: 20060809
  Receipt Date: 20060801
  Transmission Date: 20061208
  Serious: Yes (Other)
  Sender: FDA-Public Use
  Company Number: US-AVENTIS-200616477US

PATIENT
  Sex: Female
  Weight: 63.64 kg

DRUGS (10)
  1. KETEK [Suspect]
     Indication: SINUSITIS
     Route: 048
     Dates: start: 20060626, end: 20060629
  2. KETEK [Suspect]
     Route: 048
     Dates: start: 20060730, end: 20060730
  3. PREDNISONE [Suspect]
     Indication: PERICARDITIS
     Dosage: DOSE: 5-40
     Dates: start: 20060426
  4. PREDNISONE [Suspect]
  5. PREDNISONE [Suspect]
  6. PREDNISONE [Suspect]
     Dosage: DOSE: 20 MG
  7. PREDNISONE [Suspect]
  8. PREDNISONE [Suspect]
  9. PREDNISONE [Suspect]
     Dates: start: 20060731
  10. ESTRADERM [Concomitant]
     Indication: HORMONE THERAPY
     Dosage: DOSE: UNK
     Route: 061

REACTIONS (4)
  - CHEST PAIN [None]
  - DRUG INTERACTION [None]
  - PERICARDITIS [None]
  - SINUSITIS [None]
